FAERS Safety Report 26085251 (Version 2)
Quarter: 2025Q4

REPORT INFORMATION
  Report Type: Spontaneous
  Country: US (occurrence: US)
  Receive Date: 20251125
  Receipt Date: 20251211
  Transmission Date: 20260117
  Serious: No
  Sender: BRISTOL-MYERS SQUIBB COMPANY
  Company Number: US-BRISTOL-MYERS SQUIBB COMPANY-2025-157791

PATIENT
  Age: 54 Year
  Sex: Female

DRUGS (14)
  1. REVLIMID [Suspect]
     Active Substance: LENALIDOMIDE
     Indication: Plasma cell myeloma
     Dosage: FREQUENCY: EVERY OTHER DAY 14 DAYS ON, 7 DAYS OFF (21-DAYS CYCLE)
     Route: 048
     Dates: start: 20251118
  2. GOLYTELY [Concomitant]
     Active Substance: POLYETHYLENE GLYCOL 3350\POTASSIUM CHLORIDE\SODIUM BICARBONATE\SODIUM CHLORIDE\SODIUM SULFATE
     Indication: Anaemia
     Dosage: MIX AS DIRECTED AND DRINK OVER 4 HOURS, START AT 4PM
  3. MIRALAX [Concomitant]
     Active Substance: POLYETHYLENE GLYCOL 3350
     Indication: Anaemia
     Dosage: TAKE 7 PACKET ONCE
  4. Dulcolax [Concomitant]
     Indication: Abdominal pain
     Dosage: 5 MG ORAL TABLET DELAYED RELEASE; TAKE 4 TABLETS 1 HOUR AFTER GOLYTELY
     Route: 048
  5. PROTONIX [Concomitant]
     Active Substance: PANTOPRAZOLE SODIUM
     Indication: Abdominal pain
     Dosage: 40 MG ORAL TABLET DELAYED RELEASE, TAKE 1 TABLET EVERY MORNING PLEASE TAKE 30 MIN BEFORE BREAKFAST
     Route: 048
     Dates: start: 20250829
  6. PROPRANOLOL HYDROCHLORIDE [Concomitant]
     Active Substance: PROPRANOLOL HYDROCHLORIDE
     Indication: Essential hypertension
     Dosage: 20 MG ORAL TABLET; TAKE 1 TABLET 4 TIMES DAILY
     Route: 048
     Dates: start: 20251003
  7. Sevelamer HCI [Concomitant]
     Indication: Essential hypertension
     Dosage: TAKE 1 TABLET 3 TIMES DAILY WITH MEALS
     Route: 048
     Dates: start: 20251003
  8. METHIMAZOLE [Concomitant]
     Active Substance: METHIMAZOLE
     Indication: Hyperthyroidism
     Dosage: TAKE 1 TABLET DAILY
     Route: 048
     Dates: start: 20251002
  9. ACYCLOVIR [Concomitant]
     Active Substance: ACYCLOVIR
     Indication: Product used for unknown indication
     Dosage: TAKE 1 TABLET BY MOUTH TWICE DAILY ON MONDAYS, WEDNESDAYS AND FRIDAYS
     Route: 048
     Dates: start: 20250909
  10. ALLOPURINOL [Concomitant]
     Active Substance: ALLOPURINOL
     Indication: Product used for unknown indication
     Dosage: TAKE 1 TABLET OTHER EVERY OTHER DAY
     Route: 048
     Dates: start: 20250905
  11. GABAPENTIN [Concomitant]
     Active Substance: GABAPENTIN
     Indication: Product used for unknown indication
     Dosage: TAKE 1 CAPSULE 3 TIMES DAILY
     Route: 048
     Dates: start: 20250930
  12. ONDANSETRON [Concomitant]
     Active Substance: ONDANSETRON
     Indication: Nausea
     Dosage: ORAL TABLET DISINTEGRATING: DISSOLVE 1 TABLET UNDER THE TONGUE THREE TIMES A DAY AS NEEDED
     Route: 048
  13. SODIUM BICARBONATE [Concomitant]
     Active Substance: SODIUM BICARBONATE
     Indication: Product used for unknown indication
     Dosage: TAKE 1 TABLET 3 TIMES DAILY WITH MEALS
     Route: 048
     Dates: start: 20250916
  14. ASPIRIN [Concomitant]
     Active Substance: ASPIRIN
     Indication: Product used for unknown indication

REACTIONS (2)
  - Illness [Unknown]
  - Off label use [Unknown]
